FAERS Safety Report 18549544 (Version 3)
Quarter: 2021Q1

REPORT INFORMATION
  Report Type: Report from Study
  Country: US (occurrence: US)
  Receive Date: 20201126
  Receipt Date: 20210108
  Transmission Date: 20210419
  Serious: Yes (Hospitalization)
  Sender: FDA-Public Use
  Company Number: US-ALNYLAM PHARMACEUTICALS, INC.-ALN-2020-002239

PATIENT

DRUGS (1)
  1. ONPATTRO [Suspect]
     Active Substance: PATISIRAN SODIUM
     Indication: HEREDITARY NEUROPATHIC AMYLOIDOSIS
     Dosage: 30 MILLIGRAM, Q3W
     Route: 042
     Dates: start: 202009, end: 20201221

REACTIONS (8)
  - Pain [Not Recovered/Not Resolved]
  - Dementia [Unknown]
  - Oxygen saturation decreased [Unknown]
  - Swelling [Unknown]
  - Oedema [Unknown]
  - Mobility decreased [Unknown]
  - Hospitalisation [Unknown]
  - Cardiac disorder [Unknown]
